FAERS Safety Report 23268372 (Version 1)
Quarter: 2023Q4

REPORT INFORMATION
  Report Type: Spontaneous
  Country: US (occurrence: US)
  Receive Date: 20231206
  Receipt Date: 20231206
  Transmission Date: 20240109
  Serious: No
  Sender: FDA-Public Use
  Company Number: US-BRISTOL-MYERS SQUIBB COMPANY-2023-175719

PATIENT
  Age: 91 Year
  Sex: Female

DRUGS (1)
  1. POMALYST [Suspect]
     Active Substance: POMALIDOMIDE
     Indication: Renal cancer
     Dosage: TAKE 1 WHOLE CAPSULE WITH WATER, W/ OR W/O FOOD AT THE SAME TIME
     Route: 048

REACTIONS (1)
  - Off label use [Unknown]
